FAERS Safety Report 10175483 (Version 1)
Quarter: 2014Q2

REPORT INFORMATION
  Report Type: Spontaneous
  Country: ES (occurrence: ES)
  Receive Date: 20140516
  Receipt Date: 20140516
  Transmission Date: 20141212
  Serious: Yes (Other)
  Sender: FDA-Public Use
  Company Number: ES-JNJFOC-20140505311

PATIENT
  Age: 75 Year
  Sex: Male

DRUGS (2)
  1. FORTASEC [Suspect]
     Route: 048
  2. FORTASEC [Suspect]
     Indication: DIARRHOEA
     Route: 048
     Dates: start: 20140423, end: 20140424

REACTIONS (1)
  - Lip swelling [Recovering/Resolving]
